FAERS Safety Report 9283048 (Version 1)
Quarter: 2013Q2

REPORT INFORMATION
  Report Type: Spontaneous
  Country: US (occurrence: US)
  Receive Date: 20130510
  Receipt Date: 20130510
  Transmission Date: 20140414
  Serious: No
  Sender: FDA-Public Use
  Company Number: US-GLAXOSMITHKLINE-A0975773A

PATIENT
  Sex: Female
  Weight: 59.1 kg

DRUGS (6)
  1. TYKERB [Suspect]
     Indication: PRODUCT USED FOR UNKNOWN INDICATION
     Dosage: 250MG PER DAY
     Route: 048
  2. DECADRON [Concomitant]
  3. EMEND [Concomitant]
  4. ONDANSETRON [Concomitant]
  5. CLARITIN [Concomitant]
  6. NEULASTA [Concomitant]

REACTIONS (2)
  - Rash [Unknown]
  - Diarrhoea [Unknown]
